FAERS Safety Report 25779806 (Version 1)
Quarter: 2025Q3

REPORT INFORMATION
  Report Type: Spontaneous
  Country: US (occurrence: None)
  Receive Date: 20250908
  Receipt Date: 20250908
  Transmission Date: 20251021
  Serious: Yes (Hospitalization)
  Sender: FDA-CTU
  Company Number: None

PATIENT
  Age: 20 Year
  Sex: Female
  Weight: 51 kg

DRUGS (1)
  1. LAMOTRIGINE [Suspect]
     Active Substance: LAMOTRIGINE
     Indication: Seizure
     Dosage: FREQUENCY : DAILY;?
     Route: 048
     Dates: start: 20250815, end: 20250825

REACTIONS (7)
  - Therapy cessation [None]
  - Therapy cessation [None]
  - Pyrexia [None]
  - Urticaria [None]
  - Rash morbilliform [None]
  - Stevens-Johnson syndrome [None]
  - Therapy change [None]

NARRATIVE: CASE EVENT DATE: 20250825
